FAERS Safety Report 6448251-9 (Version None)
Quarter: 2009Q4

REPORT INFORMATION
  Report Type: 
  Country: None (occurrence: None)
  Receive Date: 20091120
  Receipt Date: 20091113
  Transmission Date: 20100525
  Serious: Yes (Congenital Anomaly)
  Sender: FDA-Public Use
  Company Number: NO-BRISTOL-MYERS SQUIBB COMPANY-14855548

PATIENT

DRUGS (2)
  1. REYATAZ [Suspect]
     Indication: DRUG USE FOR UNKNOWN INDICATION
     Route: 064
  2. KIVEXA [Suspect]
     Route: 064

REACTIONS (2)
  - CLEFT PALATE [None]
  - LIMB MALFORMATION [None]
